FAERS Safety Report 10403091 (Version 2)
Quarter: 2014Q3

REPORT INFORMATION
  Report Type: Spontaneous
  Country: US (occurrence: US)
  Receive Date: 20140822
  Receipt Date: 20140822
  Transmission Date: 20150326
  Serious: Yes (Hospitalization)
  Sender: FDA-Public Use
  Company Number: US-GLAXOSMITHKLINE-A0730956A

PATIENT
  Sex: Female
  Weight: 90.9 kg

DRUGS (8)
  1. AVANDIA [Suspect]
     Active Substance: ROSIGLITAZONE MALEATE
     Indication: TYPE 2 DIABETES MELLITUS
     Dosage: 8MG PER DAY
     Route: 048
     Dates: start: 1999, end: 2008
  2. CRESTOR [Concomitant]
     Active Substance: ROSUVASTATIN CALCIUM
  3. NEXIUM [Concomitant]
     Active Substance: ESOMEPRAZOLE MAGNESIUM
  4. INSULIN [Concomitant]
     Active Substance: INSULIN NOS
  5. COREG [Concomitant]
     Active Substance: CARVEDILOL
  6. TORSEMIDE. [Concomitant]
     Active Substance: TORSEMIDE
  7. ATACAND [Concomitant]
     Active Substance: CANDESARTAN CILEXETIL
  8. DEMADEX [Concomitant]
     Active Substance: TORSEMIDE

REACTIONS (6)
  - Cardiac failure congestive [Unknown]
  - Myocardial infarction [Unknown]
  - Angina pectoris [Unknown]
  - Arterial occlusive disease [Unknown]
  - Injury [Unknown]
  - Coronary artery disease [Unknown]
